FAERS Safety Report 14091285 (Version 1)
Quarter: 2017Q4

REPORT INFORMATION
  Report Type: Spontaneous
  Country: US (occurrence: US)
  Receive Date: 20171016
  Receipt Date: 20171016
  Transmission Date: 20180321
  Serious: No
  Sender: FDA-Public Use
  Company Number: US-ENDO PHARMACEUTICALS INC-2017-003592

PATIENT
  Age: 51 Year
  Sex: Male

DRUGS (3)
  1. CHOLESTYRAMINE. [Suspect]
     Active Substance: CHOLESTYRAMINE
     Indication: BLOOD CHOLESTEROL INCREASED
     Dosage: UNK UNK, QHS
     Route: 048
     Dates: start: 201604, end: 201701
  2. CHOLESTYRAMINE. [Suspect]
     Active Substance: CHOLESTYRAMINE
     Indication: DIARRHOEA
  3. ZESTRIL [Concomitant]
     Active Substance: LISINOPRIL
     Indication: HYPERTENSION

REACTIONS (2)
  - Off label use [Unknown]
  - Weight increased [Unknown]

NARRATIVE: CASE EVENT DATE: 201604
